FAERS Safety Report 5503027-1 (Version None)
Quarter: 2007Q4

REPORT INFORMATION
  Report Type: 
  Country: None (occurrence: None)
  Receive Date: 20071031
  Receipt Date: 20071019
  Transmission Date: 20080405
  Serious: Yes (Life-Threatening, Hospitalization)
  Sender: FDA-Public Use
  Company Number: GB-ROCHE-512283

PATIENT
  Age: 72 Year
  Sex: Male
  Weight: 124 kg

DRUGS (67)
  1. ORLISTAT [Suspect]
     Indication: OBESITY
     Route: 048
     Dates: start: 20070509
  2. CLOPIDOGREL [Concomitant]
     Indication: HYPERTENSION
     Dosage: FILM COATED TABLET
     Route: 048
  3. BISOPROLOL FUMARATE [Concomitant]
     Route: 048
  4. ACRIVASTIN [Concomitant]
     Route: 048
  5. ASPIRIN [Concomitant]
     Indication: THROMBOSIS PROPHYLAXIS
     Dosage: TABLET FORM AS DISP TABLET
     Route: 048
  6. AMLODIPINE [Concomitant]
     Dosage: AS MALEATE
     Route: 048
  7. RAMIPRIL [Concomitant]
     Dosage: RECEIVED IN MORNING
     Route: 048
  8. LANSOPRAZOLE [Concomitant]
     Route: 048
  9. ATORVASTATIN CALCIUM [Concomitant]
     Dosage: 40 MG RECEIVED AT NIGHT
     Route: 065
  10. SALBUTAMOL [Concomitant]
     Route: 055
  11. SIMVASTATIN [Concomitant]
     Dosage: RECEIVED AT NIGHT
  12. QVAR 40 [Concomitant]
     Dosage: CFC FREE INHALATION
     Route: 055
  13. GLYCERYL TRINITRATE [Concomitant]
     Dosage: DISSOLVED UNDER TONGUE WHEN REQUIRED FOR PAIN IN CHEST
     Route: 055
  14. CO-DYDRAMOL [Concomitant]
     Dosage: TABLET 10 MG+500 MG
  15. AMOXICILLIN [Concomitant]
  16. IBUPROFEN [Concomitant]
  17. IBUPROFEN [Concomitant]
  18. AMOROLFINE [Concomitant]
  19. DOXYCYCLINE [Concomitant]
     Dosage: PATIENT RECEIVED 200 MG AND LATER 100 MG PER DAY
  20. FLUARIX [Concomitant]
  21. SIMVADOR [Concomitant]
     Dosage: RECEIVED AT NIGHT
  22. 1 CONCOMITANT DRUG [Concomitant]
     Dosage: DRUG NAME IS FENACTOL
  23. PREDNISOLONE E-C [Concomitant]
  24. FUROSEMIDE [Concomitant]
     Dosage: RECEIVED IN MORNING
  25. LOCERYL [Concomitant]
     Dosage: APPLY ONCE OR TWICE A WEEK
  26. LIGNOCAINE [Concomitant]
  27. ATENOLOL [Concomitant]
  28. FLUVIRIN [Concomitant]
  29. FELODIPINE [Concomitant]
  30. TERBINAFINE HYDROCHLORIDE [Concomitant]
  31. ALPHADERM [Concomitant]
     Dosage: TO BE APPLIED SPARINGLY TWICE A DAY
  32. BECLOMETHASONE DIPROPIONATE [Concomitant]
     Route: 055
  33. ANUGESIC [Concomitant]
     Dosage: 1 TWICE A DAY PER RECTUM
     Route: 054
  34. ANUSOL [Concomitant]
     Dosage: APPLY AS NEEDED
  35. ERYTHROMYCIN [Concomitant]
  36. ERYTHROMYCIN [Concomitant]
  37. PROCHLORPERAZINE MALEATE [Concomitant]
     Dosage: 1 THREE TIMES A DAY WITH MEALS
  38. TROSYL NAIL SOLUTION [Concomitant]
  39. PNEUMOVAX 23 [Concomitant]
  40. CEFACLOR [Concomitant]
  41. 1 CONCOMITANT DRUG [Concomitant]
     Dosage: DRUG NAME IS VOLUMATIC
  42. NA BICARBONATE [Concomitant]
     Dosage: PUT 3 TO 4 DROPS INTO AFFECTED EAR 4 TIMES A DAY FOR 5 DAYS
     Route: 054
  43. OXYTETRACYCLINE [Concomitant]
  44. ALLOPURINOL [Concomitant]
  45. ORCIPRENALINE SULPHATE [Concomitant]
     Dosage: TWO 5ML SPOONSFUL TO BE TAKEN THREE TIMES A DAY
  46. ERYTHROPED [Concomitant]
     Dosage: ERYTHROPED A BLISTER PACK TABLET
  47. CERUMOL [Concomitant]
     Route: 001
  48. PSEUDOEPHEDRINE HYDROCHLORIDE [Concomitant]
  49. PIVAMPICILLIN [Concomitant]
  50. MEFENAMIC ACID [Concomitant]
  51. CLOTRIMAZOLE/HYDROCORTISONE [Concomitant]
     Dosage: DRUG NAME GIVEN AS CLOTRIMAZOLE 1%/ HYDROCORTISONE 1%
  52. PIVAMPICILLIN [Concomitant]
     Route: 065
  53. MEFENAMIC ACID [Concomitant]
  54. CLOTRIMAZOLE/HYDROCORTISONE [Concomitant]
  55. PHYLLOCONTIN [Concomitant]
     Route: 049
  56. BETNOVATE SCALP APPLICATION [Concomitant]
  57. TROSYL NAIL SOLUTION [Concomitant]
  58. CO-PROXAMOL [Concomitant]
  59. DAKTACORT CREAM [Concomitant]
  60. CEPHALEXIN [Concomitant]
  61. TALPEN [Concomitant]
  62. ORCIPRENALINE SULFATE [Concomitant]
     Dosage: TWO 5 ML SPOONFULS TOBE TAKEN THRICE A DAY WHEN REQUIRED
  63. VIBRAMYCIN [Concomitant]
     Dosage: DOSAGE: 2 STAT, 10 M
  64. LEDERFEN [Concomitant]
  65. LOCOID LIPOCREAM [Concomitant]
  66. NITROLINGUAL [Concomitant]
  67. GRISEOFULVIN [Concomitant]

REACTIONS (2)
  - CEREBRAL INFARCTION [None]
  - CEREBROVASCULAR ACCIDENT [None]
